FAERS Safety Report 8614473-1 (Version None)
Quarter: 2012Q3

REPORT INFORMATION
  Report Type: 
  Country: None (occurrence: None)
  Receive Date: 20120810
  Receipt Date: 20120730
  Transmission Date: 20120928
  Serious: Yes (Other)
  Sender: FDA-Public Use
  Company Number: ACO_31335_2012

PATIENT
  Age: 46 Year
  Sex: Female
  Weight: 59 kg

DRUGS (7)
  1. COLON CLEANSER NATURAL DETOX FORMULA (ALOE VERA, CITRUS SPP. PEEL, GEN [Concomitant]
  2. CIPRO [Suspect]
     Indication: URINARY TRACT INFECTION
     Dates: start: 20120601, end: 20120101
  3. SYNTHROID [Concomitant]
  4. IBUPROFEN [Concomitant]
  5. AMPYRA [Suspect]
     Indication: GAIT DISTURBANCE
     Dosage: 10 MG, Q 12 HRS, ORAL, 10 MG, Q 12 HRS, ORAL
     Route: 048
     Dates: start: 20120101
  6. AMPYRA [Suspect]
     Indication: GAIT DISTURBANCE
     Dosage: 10 MG, Q 12 HRS, ORAL, 10 MG, Q 12 HRS, ORAL
     Route: 048
     Dates: start: 20120501, end: 20120101
  7. FOCALIN [Concomitant]

REACTIONS (4)
  - URINARY TRACT INFECTION [None]
  - DIZZINESS [None]
  - TREMOR [None]
  - LOSS OF CONSCIOUSNESS [None]
